FAERS Safety Report 5285171-X (Version None)
Quarter: 2007Q2

REPORT INFORMATION
  Report Type: 
  Country: None (occurrence: None)
  Receive Date: 20070403
  Receipt Date: 20070227
  Transmission Date: 20071010
  Serious: Yes (Hospitalization)
  Sender: FDA-Public Use
  Company Number: FR-PFIZER INC-2007015873

PATIENT
  Sex: Female
  Weight: 53 kg

DRUGS (9)
  1. LYRICA [Suspect]
     Indication: NEURALGIA
     Route: 048
     Dates: start: 20070223, end: 20070307
  2. LYRICA [Interacting]
     Indication: FACIAL PAIN
  3. KLIPAL [Interacting]
     Indication: FACIAL PAIN
     Dates: start: 20070215, end: 20070225
  4. PLAQUENIL [Concomitant]
     Indication: SYSTEMIC LUPUS ERYTHEMATOSUS
     Route: 048
  5. PLAVIX [Concomitant]
     Indication: TRANSIENT ISCHAEMIC ATTACK
     Route: 048
  6. LEVOTHYROXINE SODIUM [Concomitant]
     Indication: HYPOTHYROIDISM
     Route: 048
  7. ISOPTIN [Concomitant]
     Indication: ARRHYTHMIA
     Dosage: DAILY DOSE:60MG
     Route: 048
  8. ESCITALOPRAM [Concomitant]
     Indication: DEPRESSION
     Route: 048
  9. MYOLASTAN [Concomitant]
     Indication: MYALGIA
     Route: 048

REACTIONS (3)
  - ABDOMINAL PAIN [None]
  - CONSTIPATION [None]
  - DRUG INTERACTION [None]
